FAERS Safety Report 21568912 (Version 8)
Quarter: 2024Q1

REPORT INFORMATION
  Report Type: Report from Study
  Country: JP (occurrence: JP)
  Receive Date: 20221108
  Receipt Date: 20240328
  Transmission Date: 20240409
  Serious: Yes (Other)
  Sender: FDA-Public Use
  Company Number: JP-JNJFOC-20220929442

PATIENT

DRUGS (4)
  1. ZYTIGA [Suspect]
     Active Substance: ABIRATERONE ACETATE
     Indication: Hormone-dependent prostate cancer
     Route: 048
  2. ZYTIGA [Suspect]
     Active Substance: ABIRATERONE ACETATE
     Indication: Prostate cancer metastatic
  3. PREDNISOLONE [Suspect]
     Active Substance: PREDNISOLONE
     Indication: Hormone-dependent prostate cancer
     Route: 065
  4. PREDNISOLONE [Suspect]
     Active Substance: PREDNISOLONE
     Indication: Prostate cancer metastatic
     Route: 065

REACTIONS (22)
  - Cardiac failure [Unknown]
  - Hypokalaemia [Unknown]
  - Neuropathy peripheral [Unknown]
  - Hyperglycaemia [Unknown]
  - AST/ALT ratio abnormal [Unknown]
  - Treatment failure [Unknown]
  - Hot flush [Unknown]
  - Malaise [Unknown]
  - Gamma-glutamyltransferase increased [Unknown]
  - Anaemia [Unknown]
  - Rash [Unknown]
  - Face oedema [Unknown]
  - Decreased appetite [Unknown]
  - Headache [Unknown]
  - Dyspnoea [Unknown]
  - Pollakiuria [Unknown]
  - Diarrhoea [Unknown]
  - Fatigue [Unknown]
  - Asthenopia [Unknown]
  - Disorientation [Unknown]
  - Blood alkaline phosphatase increased [Unknown]
  - Hypertension [Unknown]
